FAERS Safety Report 10214730 (Version 1)
Quarter: 2014Q2

REPORT INFORMATION
  Report Type: Spontaneous
  Country: FR (occurrence: FR)
  Receive Date: 20140603
  Receipt Date: 20140603
  Transmission Date: 20141212
  Serious: Yes (Other)
  Sender: FDA-Public Use
  Company Number: FR-ABBVIE-14K-056-1244139-00

PATIENT
  Age: 20 Month
  Sex: Female

DRUGS (1)
  1. DEPAKINE [Suspect]
     Indication: MYOCLONUS
     Route: 048
     Dates: start: 201403

REACTIONS (4)
  - Growth retardation [Not Recovered/Not Resolved]
  - Tremor [Not Recovered/Not Resolved]
  - Drug ineffective [Not Recovered/Not Resolved]
  - Drug administration error [Not Recovered/Not Resolved]
